FAERS Safety Report 24604870 (Version 2)
Quarter: 2025Q3

REPORT INFORMATION
  Report Type: Report from Study
  Country: CA (occurrence: CA)
  Receive Date: 20241111
  Receipt Date: 20250808
  Transmission Date: 20251021
  Serious: Yes (Other)
  Sender: TAKEDA
  Company Number: CA-TAKEDA-2023TUS071597

PATIENT
  Age: 19 Year
  Sex: Male

DRUGS (7)
  1. VEDOLIZUMAB [Suspect]
     Active Substance: VEDOLIZUMAB
     Indication: Colitis ulcerative
  2. VEDOLIZUMAB [Suspect]
     Active Substance: VEDOLIZUMAB
     Indication: Colitis ulcerative
     Dosage: 108 MILLIGRAM, Q2WEEKS
     Dates: start: 20230601
  3. PREDNISONE [Concomitant]
     Active Substance: PREDNISONE
  4. VITAMIN D NOS [Concomitant]
     Active Substance: CHOLECALCIFEROL\ERGOCALCIFEROL
  5. CALCIUM [Concomitant]
     Active Substance: CALCIUM
  6. CREATINE MONOHYDRATE [Concomitant]
     Active Substance: CREATINE MONOHYDRATE
  7. Whey dried [Concomitant]
     Dosage: UNK, QD

REACTIONS (11)
  - Colitis ulcerative [Not Recovered/Not Resolved]
  - Device leakage [Unknown]
  - Faeces discoloured [Unknown]
  - Gastrointestinal viral infection [Not Recovered/Not Resolved]
  - Myalgia [Unknown]
  - Diarrhoea [Unknown]
  - Faeces soft [Unknown]
  - Abdominal pain [Unknown]
  - Decreased appetite [Unknown]
  - Arthralgia [Unknown]
  - Bronchitis [Not Recovered/Not Resolved]

NARRATIVE: CASE EVENT DATE: 20230719
